FAERS Safety Report 7674138-X (Version None)
Quarter: 2011Q3

REPORT INFORMATION
  Report Type: 
  Country: None (occurrence: None)
  Receive Date: 20110810
  Receipt Date: 20110727
  Transmission Date: 20111222
  Serious: No
  Sender: FDA-Public Use
  Company Number: US-ELI_LILLY_AND_COMPANY-US201106000920

PATIENT
  Sex: Female

DRUGS (5)
  1. FORTEO [Suspect]
     Indication: OSTEOPOROSIS
     Dosage: 20 UG, QD
  2. FORTEO [Suspect]
     Dosage: 20 UG, QD
  3. OXYGEN [Concomitant]
     Dosage: UNK
  4. FORTEO [Suspect]
     Dosage: 20 UG, QD
  5. ALBUTEROL SULFATE AUTOHALER [Concomitant]

REACTIONS (4)
  - FEELING HOT [None]
  - BALANCE DISORDER [None]
  - TREMOR [None]
  - DIZZINESS [None]
